FAERS Safety Report 13915483 (Version 2)
Quarter: 2017Q3

REPORT INFORMATION
  Report Type: Report from Study
  Country: KR (occurrence: KR)
  Receive Date: 20170829
  Receipt Date: 20170919
  Transmission Date: 20171127
  Serious: Yes (Life-Threatening, Hospitalization)
  Sender: FDA-Public Use
  Company Number: KR-ROCHE-1977490

PATIENT
  Age: 70 Year
  Sex: Male
  Weight: 62 kg

DRUGS (38)
  1. OBINUTUZUMAB. [Suspect]
     Active Substance: OBINUTUZUMAB
     Dosage: CYCLE1, DAY 2
     Route: 042
     Dates: start: 20170804, end: 20170804
  2. HYALEIN MINI [Concomitant]
     Dosage: 1 DROP
     Route: 061
     Dates: start: 20170727
  3. DENOGAN [Concomitant]
     Active Substance: PROPACETAMOL HYDROCHLORIDE
     Route: 042
     Dates: start: 20170809, end: 20170809
  4. DUPHALAC EASY [Concomitant]
     Route: 048
     Dates: start: 20170816, end: 20170818
  5. OBINUTUZUMAB. [Suspect]
     Active Substance: OBINUTUZUMAB
     Indication: B-CELL LYMPHOMA
     Dosage: CYCLE 1, DAY 1
     Route: 042
     Dates: start: 20170803, end: 20170803
  6. URSA [Concomitant]
     Route: 048
     Dates: start: 20170819
  7. MEGACE [Concomitant]
     Active Substance: MEGESTROL ACETATE
     Route: 048
     Dates: start: 20170728, end: 20170809
  8. CACL [Concomitant]
     Route: 042
     Dates: start: 20170814, end: 20170814
  9. HUMALOG [Concomitant]
     Active Substance: INSULIN LISPRO
     Indication: DIABETES MELLITUS
     Dosage: 6/8 UNIT
     Route: 058
     Dates: start: 20170804, end: 20170820
  10. MEGACE [Concomitant]
     Active Substance: MEGESTROL ACETATE
     Route: 048
     Dates: start: 20170815
  11. TYLENOL [Concomitant]
     Active Substance: ACETAMINOPHEN
     Route: 065
     Dates: start: 20170804, end: 20170804
  12. LEVEMIR [Concomitant]
     Active Substance: INSULIN DETEMIR
     Route: 058
     Dates: start: 20170810, end: 20170815
  13. URSA [Concomitant]
     Route: 065
     Dates: start: 20170727, end: 20170819
  14. SODIUM BICARBONATE. [Concomitant]
     Active Substance: SODIUM BICARBONATE
     Route: 042
     Dates: start: 20170804
  15. CURAN [Concomitant]
     Active Substance: RANITIDINE HYDROCHLORIDE
     Route: 042
     Dates: start: 20170805, end: 20170806
  16. CURAN [Concomitant]
     Active Substance: RANITIDINE HYDROCHLORIDE
     Route: 042
     Dates: start: 20170809, end: 20170809
  17. DEXAMETHASONE. [Concomitant]
     Active Substance: DEXAMETHASONE
     Route: 065
     Dates: start: 20170804, end: 20170804
  18. ALBUMIN [Concomitant]
     Active Substance: ALBUMIN HUMAN
     Route: 042
     Dates: start: 20170812, end: 20170820
  19. HARNAL [Concomitant]
     Active Substance: TAMSULOSIN HYDROCHLORIDE
     Indication: DYSURIA
     Route: 048
     Dates: start: 20170727, end: 20170808
  20. NOVOMIX [Concomitant]
     Active Substance: INSULIN ASPART
     Dosage: NOVOMIX 30 FLEXPEN
     Route: 058
     Dates: start: 20170728, end: 20170804
  21. DIABEX [Concomitant]
     Active Substance: METFORMIN HYDROCHLORIDE
     Indication: DIABETES MELLITUS
     Route: 048
     Dates: start: 20170804
  22. MACPERAN [Concomitant]
     Active Substance: METOCLOPRAMIDE HYDROCHLORIDE
     Route: 042
     Dates: start: 20170809, end: 20170820
  23. MACPERAN [Concomitant]
     Active Substance: METOCLOPRAMIDE HYDROCHLORIDE
     Route: 042
     Dates: start: 20170805
  24. SODIUM BICARBONATE. [Concomitant]
     Active Substance: SODIUM BICARBONATE
     Indication: ABDOMINAL PAIN
     Dosage: 40 OTHER?PRN
     Route: 048
     Dates: start: 20170803, end: 20170820
  25. SODIUM BICARBONATE. [Concomitant]
     Active Substance: SODIUM BICARBONATE
     Dosage: PRN
     Route: 065
     Dates: start: 20170802
  26. MORPHINE SULPHATE [Concomitant]
     Active Substance: MORPHINE SULFATE
     Indication: ABDOMINAL PAIN
     Dosage: 5MG/A
     Route: 042
     Dates: start: 20170805, end: 20170805
  27. MORPHINE SULPHATE [Concomitant]
     Active Substance: MORPHINE SULFATE
     Route: 042
     Dates: start: 20170807
  28. LANTUS [Concomitant]
     Active Substance: INSULIN GLARGINE
     Indication: DIABETES MELLITUS
     Dosage: 24 UNIT
     Route: 058
     Dates: start: 20170805
  29. PENIRAMIN [Concomitant]
     Route: 065
     Dates: start: 20170804, end: 20170804
  30. TENELIA [Concomitant]
     Active Substance: TENELIGLIPTIN
     Route: 048
     Dates: start: 20170805
  31. ULCERLMIN [Concomitant]
     Active Substance: SUCRALFATE
     Route: 048
     Dates: start: 20170806, end: 20170806
  32. TRIDOL [Concomitant]
     Active Substance: TRAMADOL HYDROCHLORIDE
     Route: 042
     Dates: start: 20170808, end: 20170808
  33. SMOFKABIVEN [Concomitant]
     Active Substance: AMINO ACIDS\DEXTROSE\ELECTROLYTES NOS\SOYBEAN OIL
     Route: 042
     Dates: start: 20170811, end: 20170815
  34. SMOFKABIVEN [Concomitant]
     Active Substance: AMINO ACIDS\DEXTROSE\ELECTROLYTES NOS\SOYBEAN OIL
     Route: 042
     Dates: start: 20170820
  35. HUMULIN R [Concomitant]
     Active Substance: INSULIN HUMAN
     Route: 058
     Dates: start: 20170811, end: 20170821
  36. BGB-3111 [Suspect]
     Active Substance: INVESTIGATIONAL PRODUCT
     Indication: B-CELL LYMPHOMA
     Dosage: LAST DOSE PRIOR TO SAE ON 09/AUG/2017
     Route: 048
     Dates: start: 20170803
  37. MAGNESIUM OXIDE. [Concomitant]
     Active Substance: MAGNESIUM OXIDE
     Indication: CONSTIPATION
     Route: 048
     Dates: start: 20170807, end: 20170807
  38. CEFOBACTAM [Concomitant]
     Active Substance: CEFOPERAZONE SODIUM\SULBACTAM SODIUM
     Route: 042
     Dates: start: 20170808, end: 20170809

REACTIONS (2)
  - Septic shock [Recovered/Resolved]
  - Ascites [Recovered/Resolved]

NARRATIVE: CASE EVENT DATE: 20170809
